FAERS Safety Report 4813608-6 (Version None)
Quarter: 2005Q4

REPORT INFORMATION
  Report Type: 
  Country: None (occurrence: None)
  Receive Date: 20051028
  Receipt Date: 20050302
  Transmission Date: 20060501
  Serious: No
  Sender: FDA-Public Use
  Company Number: US-GLAXOSMITHKLINE-A0547981A

PATIENT
  Age: 61 Year
  Sex: Female

DRUGS (3)
  1. ADVAIR DISKUS 100/50 [Suspect]
     Indication: ASTHMA
     Dosage: 1PUFF TWICE PER DAY
     Route: 055
     Dates: start: 20040201
  2. AVANDIA [Concomitant]
  3. ZYRTEC [Concomitant]

REACTIONS (5)
  - APHONIA [None]
  - DYSPHONIA [None]
  - LACRIMATION INCREASED [None]
  - LUNG DISORDER [None]
  - SWELLING FACE [None]
